FAERS Safety Report 15138144 (Version 1)
Quarter: 2018Q3

REPORT INFORMATION
  Report Type: Spontaneous
  Country: JP (occurrence: JP)
  Receive Date: 20180713
  Receipt Date: 20180713
  Transmission Date: 20181010
  Serious: Yes (Hospitalization, Other)
  Sender: FDA-Public Use
  Company Number: JP-009507513-2010SP048393

PATIENT
  Age: 65 Year
  Sex: Male
  Weight: 57 kg

DRUGS (5)
  1. LAMICTAL [Suspect]
     Active Substance: LAMOTRIGINE
     Indication: SEIZURE
     Dosage: 50MG PER DAY
     Route: 048
     Dates: start: 20100720, end: 20100726
  2. LAMICTAL [Suspect]
     Active Substance: LAMOTRIGINE
     Dosage: 100MG PER DAY
     Route: 048
     Dates: start: 20100727, end: 20100802
  3. TEMODAL [Suspect]
     Active Substance: TEMOZOLOMIDE
     Indication: BRAIN NEOPLASM
     Dosage: 240MG PER DAY
     Route: 048
     Dates: start: 20100819, end: 20100823
  4. LAMICTAL [Suspect]
     Active Substance: LAMOTRIGINE
     Dosage: 200MG PER DAY
     Route: 048
     Dates: start: 20100803, end: 20100917
  5. EXCEGRAN [Concomitant]
     Active Substance: ZONISAMIDE
     Indication: SEIZURE
     Dosage: 200MG PER DAY
     Route: 048
     Dates: start: 20051025

REACTIONS (17)
  - Dermatitis exfoliative generalised [Unknown]
  - Papule [Unknown]
  - Lymphocyte percentage decreased [Unknown]
  - Perivascular dermatitis [Unknown]
  - Alanine aminotransferase increased [Unknown]
  - Gamma-glutamyltransferase increased [Unknown]
  - Blood lactate dehydrogenase increased [Unknown]
  - Pruritus [Unknown]
  - Neutrophil percentage increased [Unknown]
  - Peripheral swelling [Unknown]
  - Pyrexia [Unknown]
  - White blood cell count increased [Unknown]
  - Aspartate aminotransferase increased [Unknown]
  - Drug reaction with eosinophilia and systemic symptoms [Recovering/Resolving]
  - C-reactive protein increased [Unknown]
  - Eosinophil percentage increased [Recovered/Resolved]
  - Hepatic function abnormal [Unknown]

NARRATIVE: CASE EVENT DATE: 20100825
